FAERS Safety Report 10141388 (Version 2)
Quarter: 2014Q2

REPORT INFORMATION
  Report Type: Spontaneous
  Country: US (occurrence: US)
  Receive Date: 20140429
  Receipt Date: 20140505
  Transmission Date: 20141212
  Serious: Yes (Other)
  Sender: FDA-Public Use
  Company Number: US-ENDO PHARMACEUTICALS INC.-VANT20140013

PATIENT
  Age: 12 Year
  Sex: Male

DRUGS (1)
  1. VANTAS [Suspect]
     Indication: BLOOD TESTOSTERONE NORMAL
     Route: 058
     Dates: start: 201307

REACTIONS (3)
  - Off label use [Not Recovered/Not Resolved]
  - Drug administered to patient of inappropriate age [Not Recovered/Not Resolved]
  - Drug ineffective for unapproved indication [Not Recovered/Not Resolved]
